FAERS Safety Report 25399864 (Version 2)
Quarter: 2025Q2

REPORT INFORMATION
  Report Type: Spontaneous
  Country: DE (occurrence: DE)
  Receive Date: 20250605
  Receipt Date: 20250619
  Transmission Date: 20250717
  Serious: Yes (Other)
  Sender: TEVA
  Company Number: DE-TEVA-VS-3336074

PATIENT
  Age: 4 Year
  Sex: Female

DRUGS (4)
  1. HYDROCORTISONE [Suspect]
     Active Substance: HYDROCORTISONE
     Indication: Pseudoprecocious puberty
     Route: 065
  2. ANASTROZOLE [Suspect]
     Active Substance: ANASTROZOLE
     Indication: Adrenocortical carcinoma
     Route: 065
  3. FLUDROCORTISONE [Suspect]
     Active Substance: FLUDROCORTISONE
     Indication: Pseudoprecocious puberty
     Route: 065
  4. MITOTANE [Suspect]
     Active Substance: MITOTANE
     Indication: Adrenocortical carcinoma
     Route: 065

REACTIONS (9)
  - Adrenal insufficiency [Unknown]
  - Ataxia [Not Recovered/Not Resolved]
  - Emotional disorder [Not Recovered/Not Resolved]
  - Central hypothyroidism [Unknown]
  - Disturbance in attention [Not Recovered/Not Resolved]
  - Drug ineffective [Unknown]
  - Off label use [Unknown]
  - Abdominal discomfort [Unknown]
  - Pseudoprecocious puberty [Recovering/Resolving]
